FAERS Safety Report 5852561-3 (Version None)
Quarter: 2008Q3

REPORT INFORMATION
  Report Type: 
  Country: None (occurrence: None)
  Receive Date: 20080820
  Receipt Date: 20080820
  Transmission Date: 20090109
  Serious: Yes (Life-Threatening, Hospitalization)
  Sender: FDA-Public Use
  Company Number: None

PATIENT
  Age: 13 Year
  Sex: Female
  Weight: 50.8029 kg

DRUGS (2)
  1. KETAMINE HCL [Suspect]
     Indication: ANAESTHESIA
     Dosage: IM, 1 1/2 HOURS
     Route: 030
     Dates: start: 20080809, end: 20080819
  2. KETAMINE HCL [Suspect]
     Indication: DENTAL OPERATION
     Dosage: IM, 1 1/2 HOURS
     Route: 030
     Dates: start: 20080809, end: 20080819

REACTIONS (19)
  - AGGRESSION [None]
  - ALTERED STATE OF CONSCIOUSNESS [None]
  - APNOEA [None]
  - CONVULSION [None]
  - CRYING [None]
  - GRUNTING [None]
  - INJECTION SITE ERYTHEMA [None]
  - INJECTION SITE INDURATION [None]
  - MOVEMENT DISORDER [None]
  - MUSCLE SPASMS [None]
  - MUSCULOSKELETAL STIFFNESS [None]
  - PAIN [None]
  - PERIPHERAL COLDNESS [None]
  - PHARYNGEAL OEDEMA [None]
  - RESPIRATORY DISTRESS [None]
  - SCREAMING [None]
  - SNORING [None]
  - STARING [None]
  - UNRESPONSIVE TO STIMULI [None]
